FAERS Safety Report 6977240 (Version 5)
Quarter: 2013Q1

REPORT INFORMATION
  Report Type: Spontaneous
  Country: GB (occurrence: GB)
  Receive Date: 20090424
  Receipt Date: 20130327
  Transmission Date: 20140127
  Serious: Yes (Hospitalization, Other)
  Sender: FDA-Public Use
  Company Number: GB-ALEXION-A200900316

PATIENT
  Age: 1 Day
  Sex: 0
  Weight: .9 kg

DRUGS (2)
  1. SOLIRIS [Suspect]
     Indication: FAMILIAL RISK FACTOR
     Dosage: IN UTERO EXPOSURE
     Route: 015
  2. SOLIRIS [Suspect]
     Indication: FAMILIAL RISK FACTOR
     Dosage: IN UTERO EXPOSURE
     Route: 015

REACTIONS (3)
  - Premature baby [Unknown]
  - Meconium plug syndrome [Unknown]
  - Foetal exposure during pregnancy [Recovered/Resolved]
